FAERS Safety Report 4446367-X (Version None)
Quarter: 2004Q3

REPORT INFORMATION
  Report Type: 
  Country: None (occurrence: None)
  Receive Date: 20040802
  Receipt Date: 20040525
  Transmission Date: 20050211
  Serious: No
  Sender: FDA-Public Use
  Company Number: 2004-117117-NL

PATIENT
  Age: 38 Year
  Sex: Female
  Weight: 55.5 kg

DRUGS (4)
  1. NUVARING [Suspect]
     Indication: CONTRACEPTION
     Dosage: DF DAILY VAGINAL
     Route: 067
     Dates: start: 20040419
  2. ZYRTEC-D 12 HOUR [Concomitant]
  3. MULTI-VITAMIN [Concomitant]
  4. CALCIUM [Concomitant]

REACTIONS (4)
  - BREAST TENDERNESS [None]
  - FLUID RETENTION [None]
  - MEDICAL DEVICE DISCOMFORT [None]
  - PAIN IN EXTREMITY [None]
